FAERS Safety Report 6619785-9 (Version None)
Quarter: 2010Q1

REPORT INFORMATION
  Report Type: 
  Country: None (occurrence: None)
  Receive Date: 20100309
  Receipt Date: 20100301
  Transmission Date: 20100710
  Serious: Yes (Hospitalization, Other)
  Sender: FDA-Public Use
  Company Number: PHHO2010JP02135

PATIENT
  Sex: Male
  Weight: 57 kg

DRUGS (11)
  1. CERTICAN [Suspect]
     Indication: RENAL TRANSPLANT
     Dosage: UNK
     Route: 048
     Dates: start: 20090324, end: 20100303
  2. NEORAL [Suspect]
     Indication: RENAL TRANSPLANT
     Dosage: 400 MG
     Route: 048
     Dates: start: 20090325
  3. MEDROL [Suspect]
     Indication: RENAL TRANSPLANT
     Dosage: 4-40MG DAILY
     Dates: start: 20090324
  4. AMLODIPINE [Suspect]
     Indication: HYPERTENSION
     Dosage: UNK
     Dates: start: 20090424
  5. DETANTOL R [Concomitant]
  6. PERSANTIN-L [Concomitant]
  7. FERROMIA [Concomitant]
  8. LOCHOL [Concomitant]
  9. MYSLEE [Concomitant]
  10. ISODINE [Concomitant]
  11. SIMULECT [Concomitant]

REACTIONS (2)
  - KIDNEY TRANSPLANT REJECTION [None]
  - PROTEINURIA [None]
